FAERS Safety Report 7038686-8 (Version None)
Quarter: 2010Q4

REPORT INFORMATION
  Report Type: 
  Country: None (occurrence: None)
  Receive Date: 20101011
  Receipt Date: 20100831
  Transmission Date: 20110411
  Serious: No
  Sender: FDA-Public Use
  Company Number: US-PFIZER INC-2010098045

PATIENT
  Sex: Female
  Weight: 89.796 kg

DRUGS (6)
  1. CHANTIX [Suspect]
     Indication: SMOKING CESSATION THERAPY
     Dosage: 0.5 MG, DAILY
     Route: 048
     Dates: start: 20100701, end: 20100831
  2. CHANTIX [Suspect]
     Dosage: UNK
     Route: 048
     Dates: end: 20100831
  3. CLONIDINE [Concomitant]
     Indication: BLOOD PRESSURE ABNORMAL
     Dosage: 0.3 MG, 3X/DAY
  4. HYDROCHLOROTHIAZIDE [Concomitant]
     Indication: BLOOD PRESSURE ABNORMAL
     Dosage: 0.5 MG, DAILY
     Route: 048
  5. XANAX [Concomitant]
     Indication: ANXIETY DISORDER
     Dosage: 2 MG, 3X/DAY
  6. VICODIN [Concomitant]
     Indication: OSTEOARTHRITIS
     Dosage: 750 MG, 2X/DAY
     Route: 048

REACTIONS (1)
  - RASH [None]
